FAERS Safety Report 18766029 (Version 5)
Quarter: 2021Q2

REPORT INFORMATION
  Report Type: Spontaneous
  Country: NL (occurrence: NL)
  Receive Date: 20210120
  Receipt Date: 20210415
  Transmission Date: 20210717
  Serious: Yes (Other)
  Sender: FDA-Public Use
  Company Number: NL-BEH-2021127331

PATIENT
  Age: 28 Year
  Sex: Female
  Weight: 59.3 kg

DRUGS (10)
  1. RHOPHYLAC [Suspect]
     Active Substance: HUMAN RHO(D) IMMUNE GLOBULIN
     Indication: RHESUS INCOMPATIBILITY
     Dosage: 1X 200 MICROGRAM/2ML/1000IU
     Route: 030
     Dates: start: 20201229, end: 20201229
  2. EMESAFENE [Concomitant]
     Active Substance: MECLIZINE\PYRIDOXINE
     Indication: HYPEREMESIS GRAVIDARUM
  3. PRIMPERAN [Concomitant]
     Active Substance: METOCLOPRAMIDE HYDROCHLORIDE
     Indication: HYPEREMESIS GRAVIDARUM
  4. RHOPHYLAC [Suspect]
     Active Substance: HUMAN RHO(D) IMMUNE GLOBULIN
     Indication: RHESUS INCOMPATIBILITY
     Dosage: 1X 200 MICROGRAM/2ML/1000IU
     Route: 030
     Dates: start: 20201229, end: 20201229
  5. EMESAFENE [Concomitant]
     Active Substance: MECLIZINE\PYRIDOXINE
     Indication: HYPEREMESIS GRAVIDARUM
  6. RHOPHYLAC [Suspect]
     Active Substance: HUMAN RHO(D) IMMUNE GLOBULIN
     Dosage: 1000 INTERNATIONAL UNIT, TOT
     Route: 030
     Dates: start: 20210118, end: 20210118
  7. ZOFRAN [Concomitant]
     Active Substance: ONDANSETRON HYDROCHLORIDE
     Indication: HYPEREMESIS GRAVIDARUM
  8. RHOPHYLAC [Suspect]
     Active Substance: HUMAN RHO(D) IMMUNE GLOBULIN
     Dosage: 1000 INTERNATIONAL UNIT, TOT
     Route: 030
     Dates: start: 20210118, end: 20210118
  9. PRIMPERAN [Concomitant]
     Active Substance: METOCLOPRAMIDE HYDROCHLORIDE
     Indication: HYPEREMESIS GRAVIDARUM
  10. ZOFRAN [Concomitant]
     Active Substance: ONDANSETRON HYDROCHLORIDE
     Indication: HYPEREMESIS GRAVIDARUM

REACTIONS (2)
  - Exposure during pregnancy [Unknown]
  - Expired product administered [Unknown]
